FAERS Safety Report 16724418 (Version 2)
Quarter: 2019Q3

REPORT INFORMATION
  Report Type: Spontaneous
  Country: US (occurrence: US)
  Receive Date: 20190821
  Receipt Date: 20190830
  Transmission Date: 20191005
  Serious: Yes (Hospitalization)
  Sender: FDA-Public Use
  Company Number: US-KARYOPHARM THERAPEUTICS, INC.-2019KPT000399

PATIENT

DRUGS (2)
  1. XPOVIO [Suspect]
     Active Substance: SELINEXOR
     Indication: PLASMA CELL MYELOMA
     Dosage: 80 MG, 2X/WEEK
     Route: 048
     Dates: start: 20190807, end: 20190808
  2. XPOVIO [Suspect]
     Active Substance: SELINEXOR
     Dosage: 80 MG, 2X/WEEK
     Route: 048
     Dates: start: 20190814

REACTIONS (7)
  - Bradycardia [Recovered/Resolved]
  - Dehydration [Recovered/Resolved]
  - Cortisol decreased [Recovered/Resolved]
  - Confusional state [Recovering/Resolving]
  - Renal impairment [Unknown]
  - Hypotension [Recovered/Resolved]
  - Hypophagia [Recovering/Resolving]

NARRATIVE: CASE EVENT DATE: 20190808
